FAERS Safety Report 10052082 (Version 1)
Quarter: 2014Q2

REPORT INFORMATION
  Report Type: Spontaneous
  Country: US (occurrence: None)
  Receive Date: 20140401
  Receipt Date: 20140401
  Transmission Date: 20141212
  Serious: Yes (Death)
  Sender: FDA-Public Use
  Company Number: None

PATIENT
  Age: 69 Year
  Sex: Male
  Weight: 58.5 kg

DRUGS (1)
  1. PREMETREXED(ALIMTA, LY23154) [Suspect]

REACTIONS (10)
  - Hypoglycaemia [None]
  - Pain [None]
  - Dysarthria [None]
  - Respiratory distress [None]
  - Tachypnoea [None]
  - Tachycardia [None]
  - Feeling cold [None]
  - Pneumonia [None]
  - Renal failure acute [None]
  - Troponin increased [None]
